FAERS Safety Report 9717693 (Version 1)
Quarter: 2013Q4

REPORT INFORMATION
  Report Type: Spontaneous
  Country: US (occurrence: US)
  Receive Date: 20131127
  Receipt Date: 20131127
  Transmission Date: 20140711
  Serious: No
  Sender: FDA-Public Use
  Company Number: US-009507513-1311USA011360

PATIENT
  Age: 33 Year
  Sex: Female

DRUGS (2)
  1. CLARITIN-D-24 [Suspect]
     Indication: MALAISE
     Dosage: UNK, UNKNOWN
     Route: 048
     Dates: start: 20131115
  2. CLARITIN-D-24 [Suspect]
     Indication: NASOPHARYNGITIS

REACTIONS (4)
  - Ear discomfort [Unknown]
  - Nasal discomfort [Unknown]
  - Throat irritation [Unknown]
  - Drug effect decreased [Unknown]
